FAERS Safety Report 4415709-3 (Version None)
Quarter: 2004Q2

REPORT INFORMATION
  Report Type: 
  Country: None (occurrence: None)
  Receive Date: 20040630
  Receipt Date: 20040226
  Transmission Date: 20050107
  Serious: Yes (Hospitalization, Other)
  Sender: FDA-Public Use
  Company Number: 2004013306

PATIENT
  Age: 16 Year
  Sex: Female

DRUGS (1)
  1. ZOLOFT [Suspect]
     Indication: POST-TRAUMATIC STRESS DISORDER
     Dosage: (DAILY), ORAL
     Route: 048
     Dates: start: 20040120, end: 20040224

REACTIONS (3)
  - MOOD SWINGS [None]
  - SUICIDE ATTEMPT [None]
  - WEIGHT INCREASED [None]
